FAERS Safety Report 8517151-2 (Version None)
Quarter: 2012Q3

REPORT INFORMATION
  Report Type: 
  Country: None (occurrence: None)
  Receive Date: 20120718
  Receipt Date: 20120716
  Transmission Date: 20120928
  Serious: Yes (Death)
  Sender: FDA-Public Use
  Company Number: FI-B.I. PHARMACEUTICALS,INC./RIDGEFIELD-2012-SW-00574SF

PATIENT
  Sex: Female

DRUGS (12)
  1. ATORVASTATIN BLUEFISH [Concomitant]
     Dosage: 20 MG
     Route: 048
  2. DIUREX [Concomitant]
     Dosage: 0.5 NR
     Route: 048
  3. TENOBLOCK [Concomitant]
     Dosage: 1+0.5 MG
     Route: 048
  4. METOFORMIN MYLAN [Concomitant]
     Dosage: 3400 MG
     Route: 048
  5. PANTOPRAZOLE [Concomitant]
     Dosage: 40 MG
     Route: 048
  6. ORIGLUCON [Concomitant]
     Dosage: 3.5 MG
     Route: 048
  7. ALENDRONATE SODIUM [Concomitant]
     Dosage: DAILY DOSE: 1 X WEEK
     Route: 048
  8. TRAVATAN [Concomitant]
     Dosage: FORMULATION: EYE DROP SOLUTION, STRENGTH UNIT: MICROG/ML; ROUTE: OPHTALMIC
  9. PRADAXA [Suspect]
     Indication: ATRIAL FIBRILLATION
     Dosage: 220 MG
     Dates: start: 20120302, end: 20120604
  10. PLENDIL [Concomitant]
     Dosage: 1.5 MG
     Route: 048
  11. MEMANTINE HYDROCHLORIDE [Concomitant]
     Dosage: 20 MG
     Route: 048
  12. COHEMIN DEPOT [Concomitant]
     Dosage: FORMULATION: SOLUTION FOR INJECTION, STRENGTH UNIT: MICROG/ML
     Route: 030

REACTIONS (3)
  - GENERAL PHYSICAL HEALTH DETERIORATION [None]
  - DYSPNOEA [None]
  - ANAEMIA [None]
